FAERS Safety Report 23547859 (Version 1)
Quarter: 2024Q1

REPORT INFORMATION
  Report Type: Other
  Country: DE (occurrence: None)
  Receive Date: 20240221
  Receipt Date: 20240221
  Transmission Date: 20240410
  Serious: Yes (Hospitalization)
  Sender: FDA-Public Use
  Company Number: DE-ROCHE-3414126

PATIENT
  Age: 56 Year
  Sex: Female
  Weight: 70 kg

DRUGS (6)
  1. PERJETA [Suspect]
     Active Substance: PERTUZUMAB
     Indication: Breast cancer
     Dosage: DATE OF LAST APPLICATION PRIOR EVENT 04/AUG/2023?LAST DOSE PRIOR EVENT 840 MG
     Route: 065
     Dates: start: 20230823, end: 20231121
  2. TRASTUZUMAB [Suspect]
     Active Substance: TRASTUZUMAB
     Indication: Breast cancer
     Dosage: DATE OF LAST APPLICATION PRIOR EVENT 04/AUG/2023?LAST DOSE PRIOR EVENT 567 MG
     Route: 065
     Dates: start: 20230823, end: 20231121
  3. CARBOPLATIN [Suspect]
     Active Substance: CARBOPLATIN
     Indication: Breast cancer
     Dosage: DATE OF LAST APPLICATION PRIOR EVENT 04/AUG/2023?LAST DOSE PRIOR EVENT 470 MG, 485 MG.
     Route: 065
     Dates: start: 20230804, end: 20231121
  4. PACLITAXEL [Suspect]
     Active Substance: PACLITAXEL
     Indication: Breast cancer
     Dosage: DATE OF LAST APPLICATION PRIOR EVENT 04/AUG/2023?LAST DOSE PRIOR EVENT 138MG, 143.2 MG.
     Route: 065
     Dates: start: 20230804, end: 20231205
  5. VAGISAN (GERMANY) [Concomitant]
     Dates: start: 202309
  6. ALDIAMED [Concomitant]
     Dates: start: 202309

REACTIONS (2)
  - Vertigo [Recovered/Resolved]
  - Diarrhoea [Not Recovered/Not Resolved]
